FAERS Safety Report 22533979 (Version 1)
Quarter: 2023Q2

REPORT INFORMATION
  Report Type: Spontaneous
  Country: CA (occurrence: CA)
  Receive Date: 20230608
  Receipt Date: 20230608
  Transmission Date: 20230721
  Serious: Yes (Life-Threatening, Hospitalization)
  Sender: FDA-Public Use
  Company Number: CA-BoehringerIngelheim-2023-BI-242691

PATIENT
  Age: 67 Year
  Sex: Male
  Weight: 92 kg

DRUGS (4)
  1. OFEV [Suspect]
     Active Substance: NINTEDANIB
     Indication: Idiopathic pulmonary fibrosis
     Route: 048
  2. CHOLECALCIFEROL [Concomitant]
     Active Substance: CHOLECALCIFEROL
     Indication: Product used for unknown indication
  3. OMEGA - 3 [Concomitant]
     Indication: Product used for unknown indication
  4. ASPIRIN [Concomitant]
     Active Substance: ASPIRIN
     Indication: Product used for unknown indication

REACTIONS (6)
  - Acute myocardial infarction [Unknown]
  - Percutaneous coronary intervention [Unknown]
  - Coronary artery embolism [Unknown]
  - Cardiac ventricular thrombosis [Unknown]
  - Prosthetic cardiac valve thrombosis [Unknown]
  - Ejection fraction decreased [Unknown]
